FAERS Safety Report 10950803 (Version 2)
Quarter: 2015Q2

REPORT INFORMATION
  Report Type: Spontaneous
  Country: US (occurrence: US)
  Receive Date: 20150324
  Receipt Date: 20150427
  Transmission Date: 20150821
  Serious: Yes (Hospitalization, Other)
  Sender: FDA-Public Use
  Company Number: US-PFIZER INC-2015101952

PATIENT
  Age: 51 Year
  Sex: Male

DRUGS (2)
  1. EDEX [Concomitant]
     Active Substance: ALPROSTADIL
     Dosage: UNK
  2. VIAGRA [Suspect]
     Active Substance: SILDENAFIL CITRATE
     Indication: ERECTILE DYSFUNCTION
     Dosage: 100 MG, UNK
     Dates: start: 201409

REACTIONS (2)
  - Prostatic disorder [Recovered/Resolved]
  - Drug ineffective [Not Recovered/Not Resolved]
